FAERS Safety Report 5018085-0 (Version None)
Quarter: 2006Q2

REPORT INFORMATION
  Report Type: 
  Country: None (occurrence: None)
  Receive Date: 20060605
  Receipt Date: 20060525
  Transmission Date: 20061013
  Serious: Yes (Other)
  Sender: FDA-Public Use
  Company Number: PHFR2006GB01815

PATIENT
  Age: 49 Year
  Sex: Female

DRUGS (8)
  1. GLEEVEC [Suspect]
     Indication: ACUTE LYMPHOCYTIC LEUKAEMIA
     Dosage: 400 MG
     Route: 065
  2. GLEEVEC [Suspect]
     Dosage: 400 MG
     Route: 065
  3. METOCLOPRAMIDE [Concomitant]
     Route: 065
  4. CLARITHROMYCIN [Concomitant]
     Route: 065
  5. AMBISOME [Concomitant]
     Route: 065
  6. GRANISETRON  HCL [Concomitant]
     Route: 065
  7. CYCLIZINE [Concomitant]
     Route: 065
  8. ACYCLOVIR [Concomitant]
     Route: 065

REACTIONS (1)
  - NEPHROTIC SYNDROME [None]
